FAERS Safety Report 6446712-X (Version None)
Quarter: 2009Q4

REPORT INFORMATION
  Report Type: 
  Country: None (occurrence: None)
  Receive Date: 20091119
  Receipt Date: 20091111
  Transmission Date: 20100525
  Serious: Yes (Other)
  Sender: FDA-Public Use
  Company Number: B0603432A

PATIENT
  Age: 78 Year
  Sex: Male
  Weight: 81.6 kg

DRUGS (9)
  1. AMOXICILLIN [Suspect]
     Dosage: 3G PER DAY
     Route: 048
     Dates: start: 20090927, end: 20090930
  2. ATENOLOL [Concomitant]
     Dosage: 50MG PER DAY
     Route: 048
  3. OMEPRAZOLE [Concomitant]
     Dosage: 20MG PER DAY
     Route: 048
  4. DIPYRIDAMOLE [Concomitant]
     Dosage: 400MG PER DAY
     Route: 048
  5. SIMVASTATIN [Concomitant]
     Dosage: 40MG PER DAY
     Route: 048
     Dates: end: 20090930
  6. CALCICHEW [Concomitant]
     Route: 048
  7. ASPIRIN [Concomitant]
     Dosage: 300MG PER DAY
     Route: 048
     Dates: start: 20090925
  8. PERINDOPRIL [Concomitant]
     Dosage: 2MG PER DAY
     Route: 048
  9. METRONIDAZOLE [Concomitant]
     Dosage: 1500MG PER DAY
     Route: 048
     Dates: start: 20090927, end: 20091003

REACTIONS (1)
  - LIVER FUNCTION TEST ABNORMAL [None]
